FAERS Safety Report 13148678 (Version 1)
Quarter: 2017Q1

REPORT INFORMATION
  Report Type: Spontaneous
  Country: US (occurrence: US)
  Receive Date: 20170125
  Receipt Date: 20170125
  Transmission Date: 20170428
  Serious: No
  Sender: FDA-Public Use
  Company Number: US-PFIZER INC-2014299949

PATIENT
  Age: 74 Year
  Sex: Female

DRUGS (17)
  1. XGEVA [Concomitant]
     Active Substance: DENOSUMAB
     Indication: BREAST CANCER FEMALE
     Dosage: 70 MG/ML, MONTHLY
     Route: 058
  2. FERAHEME [Concomitant]
     Active Substance: FERUMOXYTOL NON-STOICHIOMETRIC MAGNETITE
     Indication: IRON DEFICIENCY ANAEMIA
     Dosage: UNK
     Dates: start: 20111111, end: 20111216
  3. PROCRIT [Concomitant]
     Active Substance: ERYTHROPOIETIN
     Indication: BREAST CANCER FEMALE
     Dosage: UNK UNK, WEEKLY (40000 EVERY WEEK)
     Dates: start: 20070319, end: 20080129
  4. INDAPAMIDE. [Concomitant]
     Active Substance: INDAPAMIDE
     Dosage: 0.625 MG, DAILY (1.25 MG, 1/2)
     Route: 048
  5. VITAMIN D3 [Concomitant]
     Active Substance: CHOLECALCIFEROL
     Dosage: 2000 IU, 1X/DAY
     Route: 048
  6. NORCO [Concomitant]
     Active Substance: ACETAMINOPHEN\HYDROCODONE BITARTRATE
     Indication: PAIN
     Dosage: UNK UNK, AS NEEDED
     Route: 048
  7. PREVACID [Concomitant]
     Active Substance: LANSOPRAZOLE
     Dosage: 30 MG, 1X/DAY
     Route: 048
  8. XGEVA [Concomitant]
     Active Substance: DENOSUMAB
     Indication: METASTASES TO BONE
     Dosage: 120 MG,  EVERY 4 WEEKS
     Route: 058
     Dates: start: 20140211
  9. FERAHEME [Concomitant]
     Active Substance: FERUMOXYTOL NON-STOICHIOMETRIC MAGNETITE
     Indication: BREAST CANCER FEMALE
  10. IRON [Concomitant]
     Active Substance: IRON
     Dosage: 1 DF, 2X/DAY [325 MG (65 MG IRON) TABLET]
     Route: 048
  11. LEVOTHYROXINE. [Concomitant]
     Active Substance: LEVOTHYROXINE
     Dosage: 50 UG, DAILY
     Route: 048
  12. LISINOPRIL. [Concomitant]
     Active Substance: LISINOPRIL
     Dosage: 20 MG, DAILY
     Route: 048
  13. INFED [Concomitant]
     Active Substance: IRON DEXTRAN
     Indication: IRON DEFICIENCY ANAEMIA
  14. AROMASIN [Suspect]
     Active Substance: EXEMESTANE
     Indication: BREAST CANCER
     Dosage: 25 MG, DAILY
     Route: 048
  15. FLU VACCINE [Concomitant]
     Active Substance: INFLUENZA VIRUS VACCINE
     Indication: IMMUNISATION
     Dosage: UNK
     Dates: start: 20121205, end: 20131205
  16. FERAHEME [Concomitant]
     Active Substance: FERUMOXYTOL NON-STOICHIOMETRIC MAGNETITE
     Indication: MALABSORPTION
     Dosage: UNK
     Dates: start: 20121102, end: 20121213
  17. INFED [Concomitant]
     Active Substance: IRON DEXTRAN
     Indication: BREAST CANCER FEMALE
     Dosage: UNK
     Route: 042
     Dates: start: 20070718, end: 20070829

REACTIONS (1)
  - Oropharyngeal pain [Recovering/Resolving]
